FAERS Safety Report 15299743 (Version 1)
Quarter: 2018Q3

REPORT INFORMATION
  Report Type: Other
  Country: ES (occurrence: ES)
  Receive Date: 20180821
  Receipt Date: 20180821
  Transmission Date: 20181010
  Serious: Yes (Other)
  Sender: FDA-Public Use
  Company Number: ES-ASTELLAS-2018US036578

PATIENT
  Age: 54 Year
  Sex: Female

DRUGS (1)
  1. BETMIGA [Suspect]
     Active Substance: MIRABEGRON
     Indication: PRODUCT USED FOR UNKNOWN INDICATION
     Dosage: UNK UNK, UNKNOWN FREQ.
     Route: 065
     Dates: start: 20180704, end: 20180704

REACTIONS (5)
  - Muscle contractions involuntary [Unknown]
  - Back pain [Unknown]
  - Constipation [Unknown]
  - Tachycardia [Unknown]
  - Eye pain [Unknown]

NARRATIVE: CASE EVENT DATE: 20180704
